FAERS Safety Report 16222291 (Version 1)
Quarter: 2019Q2

REPORT INFORMATION
  Report Type: Spontaneous
  Country: US (occurrence: US)
  Receive Date: 20190419
  Receipt Date: 20190419
  Transmission Date: 20190711
  Serious: No
  Sender: FDA-Public Use
  Company Number: None

PATIENT
  Age: 58 Year
  Sex: Female
  Weight: 46.35 kg

DRUGS (4)
  1. VITAMIN B12 [Concomitant]
     Active Substance: CYANOCOBALAMIN
  2. BACLOFEN. [Suspect]
     Active Substance: BACLOFEN
     Indication: BACK PAIN
     Dosage: ?          QUANTITY:2 TABLET(S);?
     Route: 048
     Dates: start: 20190415, end: 20190419
  3. MULTIVITAMIN PHYTOESTROGEN FORMULA [Concomitant]
  4. LOSARTAN POTASSIUM. [Concomitant]
     Active Substance: LOSARTAN POTASSIUM

REACTIONS (8)
  - Vomiting [None]
  - Dizziness [None]
  - Memory impairment [None]
  - Feeling abnormal [None]
  - Dysgeusia [None]
  - Insomnia [None]
  - Contraindicated product administered [None]
  - Energy increased [None]

NARRATIVE: CASE EVENT DATE: 20190417
